FAERS Safety Report 18099304 (Version 2)
Quarter: 2020Q3

REPORT INFORMATION
  Report Type: Spontaneous
  Country: US (occurrence: US)
  Receive Date: 20200731
  Receipt Date: 20200805
  Transmission Date: 20201103
  Serious: Yes (Life-Threatening, Hospitalization, Other)
  Sender: FDA-Public Use
  Company Number: US-HIKMA PHARMACEUTICALS USA INC.-US-H14001-20-03575

PATIENT
  Age: 4 Year
  Sex: Female
  Weight: 25.8 kg

DRUGS (8)
  1. METHOTREXATE. [Suspect]
     Active Substance: METHOTREXATE
     Indication: ACUTE LYMPHOCYTIC LEUKAEMIA
     Dosage: MC3D1
     Route: 037
     Dates: start: 20200519
  2. INCB018424 [Suspect]
     Active Substance: RUXOLITINIB
     Indication: ACUTE LYMPHOCYTIC LEUKAEMIA
     Dosage: IM1, DI PT 1, DI PT 2, MC1
     Route: 048
     Dates: start: 20190304, end: 20200210
  3. ZYLOPRIM [Suspect]
     Active Substance: ALLOPURINOL
     Indication: TRANSAMINASES INCREASED
     Route: 048
     Dates: start: 20200617, end: 20200706
  4. METHOTREXATE. [Suspect]
     Active Substance: METHOTREXATE
     Indication: ACUTE LYMPHOCYTIC LEUKAEMIA
     Dosage: MC3D8,15,22,29,36,43
     Route: 048
     Dates: start: 20200526, end: 20200707
  5. PREDNISONE. [Suspect]
     Active Substance: PREDNISONE
     Indication: ACUTE LYMPHOCYTIC LEUKAEMIA
     Dosage: MC3D1?5,29?33
     Route: 048
     Dates: start: 20200519
  6. VINCRISTINE [Suspect]
     Active Substance: VINCRISTINE
     Indication: ACUTE LYMPHOCYTIC LEUKAEMIA
     Dosage: MC3D1,29
     Route: 042
     Dates: start: 20200519
  7. MERCAPTOPURINE. [Suspect]
     Active Substance: MERCAPTOPURINE
     Indication: ACUTE LYMPHOCYTIC LEUKAEMIA
     Dosage: MC3D1?48
     Route: 048
     Dates: start: 20200519, end: 20200706
  8. INCB018424 [Suspect]
     Active Substance: RUXOLITINIB
     Dosage: MC2, MC3D1?14, 29?43
     Route: 048
     Dates: start: 20191008

REACTIONS (5)
  - White blood cell count decreased [Not Recovered/Not Resolved]
  - Transaminases increased [Unknown]
  - Anaemia [Not Recovered/Not Resolved]
  - Platelet count decreased [Not Recovered/Not Resolved]
  - Febrile neutropenia [Not Recovered/Not Resolved]

NARRATIVE: CASE EVENT DATE: 20200616
